FAERS Safety Report 21886067 (Version 1)
Quarter: 2023Q1

REPORT INFORMATION
  Report Type: Spontaneous
  Country: CN (occurrence: CN)
  Receive Date: 20230119
  Receipt Date: 20230119
  Transmission Date: 20230417
  Serious: Yes (Hospitalization)
  Sender: FDA-Public Use
  Company Number: CN-HALEON-CNCH2023APC002513

PATIENT

DRUGS (2)
  1. IBUPROFEN [Suspect]
     Active Substance: IBUPROFEN
     Indication: Analgesic therapy
     Dosage: 0.300 G, BID
     Route: 048
     Dates: start: 20221222, end: 20221223
  2. IBUPROFEN [Suspect]
     Active Substance: IBUPROFEN
     Indication: Coronavirus infection

REACTIONS (3)
  - Rash papular [Unknown]
  - Pruritus [Unknown]
  - Drug eruption [Unknown]

NARRATIVE: CASE EVENT DATE: 20221225
